FAERS Safety Report 12720538 (Version 1)
Quarter: 2016Q3

REPORT INFORMATION
  Report Type: Spontaneous
  Country: HR (occurrence: HR)
  Receive Date: 20160907
  Receipt Date: 20160907
  Transmission Date: 20161109
  Serious: Yes (Other)
  Sender: FDA-Public Use
  Company Number: HR-ELI_LILLY_AND_COMPANY-HR201609000767

PATIENT
  Age: 30 Year
  Sex: Male
  Weight: 72 kg

DRUGS (6)
  1. ZYPREXA [Suspect]
     Active Substance: OLANZAPINE
     Indication: SCHIZOPHRENIA
     Dosage: 15 MG, QD
     Route: 048
     Dates: end: 20160718
  2. MENDILEX [Concomitant]
     Dosage: 2 MG, QD
     Route: 048
  3. PRAZINE [Concomitant]
     Active Substance: PROMAZINE HYDROCHLORIDE
     Dosage: 150 MG, QD
     Route: 048
  4. LUXETA [Concomitant]
     Active Substance: SERTRALINE HYDROCHLORIDE
     Dosage: 25 MG, QD
     Route: 048
  5. MODITEN                            /00000602/ [Concomitant]
     Active Substance: FLUPHENAZINE HYDROCHLORIDE
     Dosage: 1 MG, QD
     Route: 048
  6. XEPLION [Concomitant]
     Active Substance: PALIPERIDONE PALMITATE
     Dosage: 100 MG, MONTHLY (1/M)
     Route: 030
     Dates: start: 20160711

REACTIONS (3)
  - Ejaculation failure [Recovered/Resolved]
  - Painful ejaculation [Unknown]
  - Urinary retention [Recovered/Resolved]

NARRATIVE: CASE EVENT DATE: 20160715
